FAERS Safety Report 19041709 (Version 1)
Quarter: 2021Q1

REPORT INFORMATION
  Report Type: Spontaneous
  Country: DE (occurrence: DE)
  Receive Date: 20210322
  Receipt Date: 20210322
  Transmission Date: 20210420
  Serious: Yes (Other)
  Sender: FDA-Public Use
  Company Number: DE-PFIZER INC-2021274938

PATIENT
  Age: 30 Year
  Sex: Female

DRUGS (1)
  1. MINPROSTIN [Suspect]
     Active Substance: DINOPROSTONE
     Indication: INDUCED LABOUR
     Dosage: 1 MG (ONE TIME ADMINISTRATION LOWER DOSE)

REACTIONS (1)
  - Uterine hyperstimulation [Unknown]
